FAERS Safety Report 7556197-8 (Version None)
Quarter: 2011Q2

REPORT INFORMATION
  Report Type: 
  Country: None (occurrence: None)
  Receive Date: 20110620
  Receipt Date: 20090629
  Transmission Date: 20111010
  Serious: No
  Sender: FDA-Public Use
  Company Number: 2009BI020054

PATIENT
  Sex: Female

DRUGS (2)
  1. BENADRYL [Concomitant]
     Indication: SLEEP DISORDER
     Route: 048
  2. TYSABRI [Suspect]
     Indication: MULTIPLE SCLEROSIS
     Route: 042
     Dates: start: 20080818

REACTIONS (9)
  - BALANCE DISORDER [None]
  - LYMPHOEDEMA [None]
  - GAIT DISTURBANCE [None]
  - FATIGUE [None]
  - CENTRAL NERVOUS SYSTEM LESION [None]
  - ASTHENIA [None]
  - FALL [None]
  - SEASONAL ALLERGY [None]
  - MULTIPLE SCLEROSIS [None]
